FAERS Safety Report 5492428-6 (Version None)
Quarter: 2007Q4

REPORT INFORMATION
  Report Type: 
  Country: None (occurrence: None)
  Receive Date: 20071015
  Receipt Date: 20070813
  Transmission Date: 20080405
  Serious: No
  Sender: FDA-Public Use
  Company Number: 2007SP002837

PATIENT
  Age: 59 Year
  Sex: Female
  Weight: 49.8957 kg

DRUGS (5)
  1. LUNESTA [Suspect]
     Indication: INSOMNIA
     Dosage: 2 MG; PRN; ORAL, 2 MG; HS; ORAL
     Route: 048
     Dates: start: 20070701, end: 20070101
  2. LUNESTA [Suspect]
     Indication: INSOMNIA
     Dosage: 2 MG; PRN; ORAL, 2 MG; HS; ORAL
     Route: 048
     Dates: start: 20070810, end: 20070812
  3. ESTROGENS CONJUGATED [Concomitant]
  4. FOSAMAX [Concomitant]
  5. VALIUM [Concomitant]

REACTIONS (6)
  - DIARRHOEA [None]
  - DRUG INEFFECTIVE [None]
  - DRY SKIN [None]
  - MIDDLE INSOMNIA [None]
  - PRURITUS [None]
  - RASH [None]
